FAERS Safety Report 16707431 (Version 1)
Quarter: 2019Q3

REPORT INFORMATION
  Report Type: Spontaneous
  Country: CN (occurrence: CN)
  Receive Date: 20190815
  Receipt Date: 20190815
  Transmission Date: 20191004
  Serious: Yes (Life-Threatening, Other)
  Sender: FDA-Public Use
  Company Number: CN-PFIZER INC-2019347781

PATIENT
  Age: 24 Year
  Sex: Female

DRUGS (3)
  1. METHOTREXATE. [Suspect]
     Active Substance: METHOTREXATE
     Indication: CHEMOTHERAPY
     Dosage: 10 MG, 1X/DAY
     Route: 037
     Dates: start: 20190730, end: 20190730
  2. CYTOSAR [Suspect]
     Active Substance: CYTARABINE
     Indication: CHEMOTHERAPY
     Dosage: 50 MG, 1X/DAY
     Route: 037
     Dates: start: 20190730, end: 20190730
  3. DEXAMETHASONE SODIUM PHOSPHATE. [Concomitant]
     Active Substance: DEXAMETHASONE SODIUM PHOSPHATE
     Indication: CHEMOTHERAPY
     Dosage: 5 MG, 1X/DAY
     Route: 037
     Dates: start: 20190730, end: 20190730

REACTIONS (6)
  - Nausea [Unknown]
  - Dizziness [Unknown]
  - Headache [Unknown]
  - Acute respiratory failure [Recovering/Resolving]
  - Coma [Unknown]
  - Hyperhidrosis [Unknown]

NARRATIVE: CASE EVENT DATE: 20190730
